FAERS Safety Report 4628419-4 (Version None)
Quarter: 2005Q2

REPORT INFORMATION
  Report Type: 
  Country: None (occurrence: None)
  Receive Date: 20050406
  Receipt Date: 20050308
  Transmission Date: 20051028
  Serious: Yes (Hospitalization)
  Sender: FDA-Public Use
  Company Number: PHBS2005JP03387

PATIENT
  Age: 52 Year
  Sex: Female

DRUGS (3)
  1. DIOVAN [Suspect]
     Indication: HYPERTENSION
     Dosage: 80 MG, QD
     Route: 048
     Dates: end: 20050218
  2. ALLEGRA [Concomitant]
     Dosage: 120 MG/DAY
     Route: 048
     Dates: end: 20050218
  3. PA [Suspect]
     Dosage: UNK, UNK
     Route: 048
     Dates: end: 20050218

REACTIONS (3)
  - C-REACTIVE PROTEIN INCREASED [None]
  - GENERALISED ERYTHEMA [None]
  - PYREXIA [None]
